FAERS Safety Report 5427710-1 (Version None)
Quarter: 2007Q3

REPORT INFORMATION
  Report Type: 
  Country: None (occurrence: None)
  Receive Date: 20070828
  Receipt Date: 20070813
  Transmission Date: 20080115
  Serious: Yes (Death, Hospitalization)
  Sender: FDA-Public Use
  Company Number: US-ROCHE-511859

PATIENT
  Age: 86 Year
  Sex: Male
  Weight: 54.5 kg

DRUGS (9)
  1. CAPECITABINE [Suspect]
     Route: 048
     Dates: start: 20070618
  2. OXALIPLATIN [Suspect]
     Route: 042
     Dates: start: 20070618, end: 20070618
  3. CETUXIMAB [Suspect]
     Dosage: DOSING AMOUNT ALSO REPORTED AS : 400 MG/M2.
     Route: 042
     Dates: start: 20070618, end: 20070618
  4. RABEPRAZOLE SODIUM [Concomitant]
     Route: 048
  5. HYDROCHLOROTHIAZIDE [Concomitant]
     Route: 048
  6. CELECOXIB [Concomitant]
     Route: 048
  7. POTASSIUM CHLORIDE [Concomitant]
     Route: 048
  8. IRON SULFATETHIAMIN COMPOUND TAB [Concomitant]
  9. TRIAMCINOLONE [Concomitant]
     Route: 061

REACTIONS (5)
  - DEHYDRATION [None]
  - DISEASE PROGRESSION [None]
  - HYPOKALAEMIA [None]
  - HYPONATRAEMIA [None]
  - PNEUMONIA [None]
